FAERS Safety Report 10842013 (Version 1)
Quarter: 2015Q1

REPORT INFORMATION
  Report Type: Report from Study
  Country: US (occurrence: US)
  Receive Date: 20150220
  Receipt Date: 20150220
  Transmission Date: 20150721
  Serious: No
  Sender: FDA-Public Use
  Company Number: US-ABBVIE-14P-163-1266377-00

PATIENT
  Sex: Female

DRUGS (17)
  1. LOPARAMIDE [Concomitant]
     Indication: CROHN^S DISEASE
  2. METFORMIN [Concomitant]
     Active Substance: METFORMIN HYDROCHLORIDE
     Indication: DIABETES MELLITUS
  3. ALFAGAN [Concomitant]
     Indication: GLAUCOMA
     Dosage: BOTH EYES
  4. CALCIUM+D+ZINC [Concomitant]
     Indication: PRODUCT USED FOR UNKNOWN INDICATION
  5. MULTIVITAMIN FOR WOMEN [Concomitant]
     Indication: PRODUCT USED FOR UNKNOWN INDICATION
  6. ACTOS [Concomitant]
     Active Substance: PIOGLITAZONE HYDROCHLORIDE
     Indication: DIABETES MELLITUS
  7. PROAIR HFA [Concomitant]
     Active Substance: ALBUTEROL SULFATE
     Indication: ASTHMA
     Dosage: BOTH EYES AT BEDTIME
  8. FERROUS SULFATE [Concomitant]
     Active Substance: FERROUS SULFATE\FERROUS SULFATE, DRIED
     Indication: PRODUCT USED FOR UNKNOWN INDICATION
  9. CHROMIUM [Concomitant]
     Active Substance: CHROMIC CHLORIDE\CHROMIUM
     Indication: PRODUCT USED FOR UNKNOWN INDICATION
  10. HUMIRA [Suspect]
     Active Substance: ADALIMUMAB
     Indication: CROHN^S DISEASE
     Dates: start: 20140513
  11. MAG-OXIDE OTC [Concomitant]
     Indication: PRODUCT USED FOR UNKNOWN INDICATION
  12. KLORCON (MIO) [Concomitant]
     Indication: ELECTROLYTE SUBSTITUTION THERAPY
  13. CINNAMON. [Concomitant]
     Active Substance: CINNAMON
     Indication: PRODUCT USED FOR UNKNOWN INDICATION
  14. JANUVIA [Concomitant]
     Active Substance: SITAGLIPTIN PHOSPHATE
     Indication: DIABETES MELLITUS
  15. COSOPY EYEDROPS [Concomitant]
     Indication: GLAUCOMA
     Dosage: BOTH EYES
  16. DELZACOL [Concomitant]
     Indication: CROHN^S DISEASE
  17. FUROSEMIDE. [Concomitant]
     Active Substance: FUROSEMIDE
     Indication: FLUID RETENTION

REACTIONS (1)
  - Heart rate increased [Not Recovered/Not Resolved]
